FAERS Safety Report 17326625 (Version 2)
Quarter: 2020Q1

REPORT INFORMATION
  Report Type: Spontaneous
  Country: PL (occurrence: PL)
  Receive Date: 20200127
  Receipt Date: 20200219
  Transmission Date: 20200409
  Serious: Yes (Other)
  Sender: FDA-Public Use
  Company Number: PL-009507513-2001POL007706

PATIENT
  Age: 15 Year
  Sex: Female
  Weight: 58 kg

DRUGS (3)
  1. PREVYMIS [Suspect]
     Active Substance: LETERMOVIR
     Indication: ANTIVIRAL PROPHYLAXIS
     Dosage: UNK
     Route: 048
     Dates: start: 20191217
  2. HEVIRAN [Concomitant]
     Active Substance: ACYCLOVIR
     Dosage: UNK
     Route: 048
     Dates: start: 201909
  3. CYCLOSPORINE. [Suspect]
     Active Substance: CYCLOSPORINE
     Indication: IMMUNOSUPPRESSANT DRUG THERAPY
     Dosage: UNK
     Route: 042
     Dates: start: 20191217

REACTIONS (2)
  - Product use issue [Unknown]
  - Aplastic anaemia [Unknown]

NARRATIVE: CASE EVENT DATE: 20191217
